FAERS Safety Report 14986552 (Version 6)
Quarter: 2020Q1

REPORT INFORMATION
  Report Type: Report from Study
  Country: CA (occurrence: CA)
  Receive Date: 20180608
  Receipt Date: 20200131
  Transmission Date: 20200409
  Serious: Yes (Hospitalization, Other)
  Sender: FDA-Public Use
  Company Number: CA-BRISTOL-MYERS SQUIBB COMPANY-BMS-2017-047026

PATIENT
  Age: 78 Year
  Sex: Female

DRUGS (1)
  1. ABATACEPT [Suspect]
     Active Substance: ABATACEPT
     Indication: RHEUMATOID ARTHRITIS
     Dosage: 125 MG, QWK
     Route: 058
     Dates: start: 20140703

REACTIONS (9)
  - Pneumonia viral [Recovered/Resolved]
  - Vomiting [Unknown]
  - Arthropathy [Unknown]
  - Diarrhoea [Unknown]
  - Limb injury [Recovering/Resolving]
  - Bronchitis [Unknown]
  - Squamous cell carcinoma of skin [Unknown]
  - Clostridium difficile infection [Not Recovered/Not Resolved]
  - Wound [Unknown]

NARRATIVE: CASE EVENT DATE: 20170502
